FAERS Safety Report 25871157 (Version 2)
Quarter: 2025Q4

REPORT INFORMATION
  Report Type: Spontaneous
  Country: EU (occurrence: EU)
  Receive Date: 20251001
  Receipt Date: 20251118
  Transmission Date: 20260117
  Serious: Yes (Life-Threatening, Hospitalization)
  Sender: ALEXION PHARMACEUTICALS
  Company Number: EU-AMGEN-CYPSP2025186639

PATIENT
  Age: 39 Year
  Sex: Female

DRUGS (6)
  1. ECULIZUMAB [Suspect]
     Active Substance: ECULIZUMAB
     Indication: Atypical haemolytic uraemic syndrome
     Dosage: UNK
     Route: 065
  2. HYDRALAZINE [Concomitant]
     Active Substance: HYDRALAZINE HYDROCHLORIDE
     Indication: Blood pressure increased
     Dosage: UNK
     Route: 065
  3. NIFEDIPINE [Concomitant]
     Active Substance: NIFEDIPINE
     Indication: Blood pressure increased
     Dosage: UNK
     Route: 065
  4. METHYLDOPA [Concomitant]
     Active Substance: METHYLDOPA
     Indication: Blood pressure increased
     Dosage: UNK
     Route: 065
  5. LABETALOL [Concomitant]
     Active Substance: LABETALOL
     Indication: Blood pressure increased
     Dosage: UNK
     Route: 065
  6. FUROSEMIDE [Concomitant]
     Active Substance: FUROSEMIDE
     Indication: Blood pressure increased
     Dosage: UNK
     Route: 065

REACTIONS (4)
  - Atypical haemolytic uraemic syndrome [Recovering/Resolving]
  - General physical health deterioration [Recovering/Resolving]
  - Abortion induced [Unknown]
  - Maternal exposure during pregnancy [Unknown]
